FAERS Safety Report 24789389 (Version 8)
Quarter: 2025Q2

REPORT INFORMATION
  Report Type: Spontaneous
  Country: US (occurrence: US)
  Receive Date: 20241230
  Receipt Date: 20250523
  Transmission Date: 20250716
  Serious: No
  Sender: PFIZER
  Company Number: US-PFIZER INC-202400329822

PATIENT
  Age: 13 Year
  Sex: Male

DRUGS (1)
  1. GENOTROPIN [Suspect]
     Active Substance: SOMATROPIN
     Dosage: 1.3 MG, DAILY

REACTIONS (5)
  - Poor quality device used [Unknown]
  - Device leakage [Unknown]
  - Device breakage [Unknown]
  - Device malfunction [Unknown]
  - Liquid product physical issue [Unknown]
